FAERS Safety Report 6152547-8 (Version None)
Quarter: 2009Q2

REPORT INFORMATION
  Report Type: 
  Country: None (occurrence: None)
  Receive Date: 20090413
  Receipt Date: 20090402
  Transmission Date: 20091009
  Serious: Yes (Death, Hospitalization, Disabling)
  Sender: FDA-Public Use
  Company Number: DE-BAYER-200911321GPV

PATIENT
  Age: 75 Year
  Sex: Male
  Weight: 74 kg

DRUGS (10)
  1. 90-Y IBRITUMOMAB TIUXETAN [Suspect]
     Indication: NON-HODGKIN'S LYMPHOMA
     Route: 042
  2. 90-Y IBRITUMOMAB TIUXETAN [Suspect]
     Dosage: 0.4 MCI/KG
     Route: 042
     Dates: start: 20040506, end: 20040506
  3. FLUDARABINE PHOSPHATE [Suspect]
     Indication: NON-HODGKIN'S LYMPHOMA
     Dosage: R-FC REGIMEN
     Route: 065
     Dates: start: 20031101, end: 20040201
  4. YTRACIS [Suspect]
     Indication: NON-HODGKIN'S LYMPHOMA
  5. RITUXIMAB [Suspect]
     Indication: NON-HODGKIN'S LYMPHOMA
     Route: 042
     Dates: start: 20040506, end: 20040506
  6. RITUXIMAB [Suspect]
     Route: 042
     Dates: start: 20040429, end: 20040429
  7. INDIUM 111 [Suspect]
  8. FLUDARABINE PHOSPHATE [Suspect]
     Indication: NON-HODGKIN'S LYMPHOMA RECURRENT
     Dosage: OFF-PROTOCOL TREATMENT FOR NHL RELAPSE
     Route: 065
     Dates: start: 20070613, end: 20070616
  9. CYCLOPHOSPHAMIDE [Concomitant]
     Indication: NON-HODGKIN'S LYMPHOMA
     Dosage: R-FC REGIMEN
     Dates: start: 20031101, end: 20040201
  10. RITUXIMAB [Concomitant]
     Dosage: R-FC REGIMEN
     Dates: start: 20031101, end: 20040201

REACTIONS (4)
  - ACUTE MYELOID LEUKAEMIA [None]
  - MULTI-ORGAN FAILURE [None]
  - MYELODYSPLASTIC SYNDROME [None]
  - PNEUMONIA [None]
